FAERS Safety Report 7276735-2 (Version None)
Quarter: 2011Q1

REPORT INFORMATION
  Report Type: 
  Country: None (occurrence: None)
  Receive Date: 20110204
  Receipt Date: 20110201
  Transmission Date: 20110831
  Serious: Yes (Hospitalization, Other)
  Sender: FDA-Public Use
  Company Number: JP-PFIZER INC-2010175239

PATIENT
  Age: 76 Year
  Sex: Male
  Weight: 54 kg

DRUGS (20)
  1. VFEND [Suspect]
     Dosage: 200 MG, 2X/DAY
     Route: 042
     Dates: start: 20101105, end: 20101124
  2. VFEND [Suspect]
     Dosage: 150 MG, 2X/DAY
     Route: 048
     Dates: start: 20100922, end: 20100930
  3. PREDONINE [Concomitant]
     Indication: INTERSTITIAL LUNG DISEASE
     Dosage: 15 MG, 2X/DAY
     Route: 048
     Dates: start: 20101130, end: 20101213
  4. FUROSEMIDE [Concomitant]
     Indication: CARDIAC FAILURE
     Dosage: 40 MG, 1X/DAY
     Route: 048
     Dates: start: 20101117, end: 20101201
  5. NEULEPTIL [Suspect]
     Dosage: 2.5 MG, 1X/DAY
     Dates: start: 20101212
  6. ITRIZOLE [Suspect]
     Indication: BRONCHOPULMONARY ASPERGILLOSIS
     Dosage: 200 MG, 1X/DAY
     Route: 048
     Dates: start: 20101217, end: 20101226
  7. URSO 250 [Concomitant]
     Dosage: 200 MG, 3X/DAY
     Route: 048
     Dates: start: 20101215
  8. VFEND [Suspect]
     Indication: BRONCHOPULMONARY ASPERGILLOSIS
     Dosage: 150 MG, 2X/DAY
     Route: 042
     Dates: start: 20101001, end: 20101002
  9. PREDONINE [Concomitant]
     Dosage: 15 MG, 2X/DAY
     Route: 048
     Dates: start: 20101214, end: 20101227
  10. URSO 250 [Concomitant]
     Indication: HEPATITIS C
     Dosage: 100 MG, 3X/DAY
     Route: 048
     Dates: start: 20101027, end: 20101214
  11. WARFARIN [Concomitant]
     Dosage: 2.0 MG, 1X/DAY
     Dates: start: 20101213, end: 20101219
  12. VFEND [Suspect]
     Dosage: 200 MG, 2X/DAY
     Route: 048
     Dates: start: 20101125, end: 20101216
  13. NEULEPTIL [Suspect]
     Indication: ADJUSTMENT DISORDER
     Dosage: 5 MG, 2X/DAY
     Route: 048
     Dates: start: 20101207, end: 20101212
  14. FOSAMAX [Concomitant]
     Indication: OSTEOPOROSIS
     Dosage: 35 MG, WEEKLY
     Route: 048
     Dates: start: 20101206
  15. FERRO-GRADUMET [Concomitant]
     Indication: ANAEMIA
     Dosage: 105 MG, 2X/DAY
     Route: 048
     Dates: start: 20101213, end: 20101217
  16. WARFARIN [Concomitant]
     Indication: DEEP VEIN THROMBOSIS
     Dosage: 2.5 MG, 1X/DAY
     Route: 048
     Dates: start: 20101201, end: 20101212
  17. TRANEXAMIC ACID [Concomitant]
     Indication: PROTEIN-LOSING GASTROENTEROPATHY
     Dosage: 500 MG, 3X/DAY
     Route: 048
     Dates: start: 20101106, end: 20101225
  18. AZULENE SULFONATE SODIUM/L-GLUTAMINE [Concomitant]
     Indication: MALABSORPTION
     Dosage: 3.35 G, 3X/DAY
     Dates: start: 20101110, end: 20101221
  19. FUROSEMIDE [Concomitant]
     Dosage: 40 MG, 2X/DAY
     Dates: start: 20101202
  20. ETIZOLAM [Concomitant]
     Indication: ADJUSTMENT DISORDER
     Dosage: 0.5 MG, 1X/DAY
     Route: 048
     Dates: start: 20101205

REACTIONS (3)
  - PLATELET COUNT DECREASED [None]
  - HEPATIC FUNCTION ABNORMAL [None]
  - ANAEMIA [None]
